FAERS Safety Report 8520124-7 (Version None)
Quarter: 2012Q3

REPORT INFORMATION
  Report Type: 
  Country: None (occurrence: None)
  Receive Date: 20120719
  Receipt Date: 20120712
  Transmission Date: 20120928
  Serious: Yes (Hospitalization)
  Sender: FDA-Public Use
  Company Number: US-BAYER-2012-070929

PATIENT
  Age: 38 Year
  Sex: Female
  Weight: 124.5 kg

DRUGS (27)
  1. YAZ [Suspect]
  2. LIDODERM [Concomitant]
     Dosage: UP TO 3 PATCHES DAILY
     Route: 062
  3. PROZAC [Concomitant]
     Dosage: 40 MG, UNK
     Route: 048
  4. METROGEL [Concomitant]
     Dosage: 1 %, DAILY
  5. IMITREX [Concomitant]
     Route: 045
  6. SERTRALINE HYDROCHLORIDE [Concomitant]
     Dosage: 100 MG, DAILY
  7. HYDROCHLOROTHIAZIDE [Concomitant]
     Dosage: 25 MG, DAILY
  8. VITAMIN B-12 [Concomitant]
     Dosage: 100 MG, DAILY
     Route: 048
  9. XANAX [Concomitant]
     Dosage: 0.5 MBQ, BID
     Route: 048
  10. SUMATRIPTAN [Concomitant]
     Dosage: 20 MG, PRN
     Route: 045
  11. ZYRTEC [Concomitant]
     Dosage: 10 MG, DAILY
  12. LEVAQUIN [Concomitant]
     Dosage: 750 MG, DAILY
     Route: 048
  13. VITAMIN D [Concomitant]
     Dosage: 7000 UNITS DAILY
  14. XANAX [Concomitant]
     Dosage: 0.5 MG, PRN
     Route: 048
  15. PREDNISONE [Concomitant]
     Dosage: 10 MG, QID
     Route: 048
  16. LOVAZA [Concomitant]
     Dosage: 1 G, QID
     Route: 048
  17. TORADOL [Concomitant]
     Dosage: 10 MG, PRN
  18. OMNARIS [Concomitant]
     Dosage: 50 ?G, DAILY
  19. IBUPROFEN [Concomitant]
     Dosage: 650 MG, TID AS NEEDED
     Route: 048
  20. BENAZEPRIL HYDROCHLORIDE [Concomitant]
     Dosage: 40 MG, DAILY
     Route: 048
  21. PROAIR HFA [Concomitant]
     Dosage: 2 SPRAYS EVERY 4-6 HOURS
  22. MUCINEX DM [Concomitant]
     Dosage: 1 TABLET DAILY
     Route: 048
  23. KLONOPIN [Concomitant]
     Dosage: 0.5 MG, HS
     Route: 048
  24. FROVA [Concomitant]
     Dosage: 2.5 MG, PRN
     Route: 048
  25. MELOXICAM [Concomitant]
     Dosage: 7.5 MG, DAILY
     Route: 048
  26. ZOMIG-ZMT [Concomitant]
     Dosage: 5 MG, PRN
  27. ZANAFLEX [Concomitant]
     Dosage: 2 MG, DAILY

REACTIONS (2)
  - PULMONARY EMBOLISM [None]
  - DEEP VEIN THROMBOSIS [None]
